FAERS Safety Report 5098832-2 (Version None)
Quarter: 2006Q3

REPORT INFORMATION
  Report Type: 
  Country: None (occurrence: None)
  Receive Date: 20060907
  Receipt Date: 20060712
  Transmission Date: 20061208
  Serious: Yes (Life-Threatening, Hospitalization)
  Sender: FDA-Public Use
  Company Number: GBWYE134112JUL06

PATIENT
  Age: 54 Year
  Sex: Female

DRUGS (6)
  1. ENBREL [Suspect]
     Indication: DRUG USE FOR UNKNOWN INDICATION
     Route: 058
     Dates: start: 20031101, end: 20060401
  2. HUMIRA [Suspect]
     Indication: RHEUMATOID ARTHRITIS
     Route: 058
     Dates: start: 20060401
  3. PREDNISOLONE [Concomitant]
     Indication: RHEUMATOID ARTHRITIS
     Route: 048
  4. MORPHINE SULFATE [Concomitant]
     Indication: PAIN
     Dosage: 90MG DAILY
     Route: 048
  5. ORAMORPH SR [Concomitant]
     Dosage: UNKNOWN
     Route: 048
  6. DICLOFENAC [Concomitant]
     Route: 048

REACTIONS (2)
  - MENINGITIS STAPHYLOCOCCAL [None]
  - THROMBOPHLEBITIS SEPTIC [None]
